FAERS Safety Report 10248957 (Version 5)
Quarter: 2014Q4

REPORT INFORMATION
  Report Type: Report from Study
  Country: KR (occurrence: KR)
  Receive Date: 20140620
  Receipt Date: 20141223
  Transmission Date: 20150528
  Serious: Yes (Death, Hospitalization, Other)
  Sender: FDA-Public Use
  Company Number: KR-ROCHE-1419309

PATIENT
  Age: 43 Year
  Sex: Male
  Weight: 60 kg

DRUGS (221)
  1. VINCRISTINE [Suspect]
     Active Substance: VINCRISTINE
     Indication: DIFFUSE LARGE B-CELL LYMPHOMA
     Dosage: DATE OF LAST DOSE (2 MG) PRIOR TO SAE ONSET :05/MAR/2014
     Route: 050
     Dates: start: 20131030
  2. GASTER (SOUTH KOREA) [Concomitant]
     Route: 065
     Dates: start: 20131022
  3. SMECTA [Concomitant]
     Active Substance: MONTMORILLONITE
     Route: 065
     Dates: start: 20131109
  4. GRASIN [Concomitant]
     Indication: NEUTROPENIA
     Route: 065
     Dates: start: 20140511, end: 20140511
  5. GRASIN [Concomitant]
     Route: 065
     Dates: start: 20140811, end: 20140812
  6. CHLORPHENIRAMINE [Concomitant]
     Active Substance: CHLORPHENIRAMINE
     Route: 065
     Dates: start: 20140829, end: 20140830
  7. SODIUM CHLORIDE. [Concomitant]
     Active Substance: SODIUM CHLORIDE
     Route: 065
     Dates: start: 20140815, end: 20140815
  8. NORMAL SALINE [Concomitant]
     Active Substance: SODIUM CHLORIDE
     Route: 065
     Dates: start: 20140810, end: 20140810
  9. POTASSIUM CHLORIDE. [Concomitant]
     Active Substance: POTASSIUM CHLORIDE
     Route: 065
     Dates: start: 20140829, end: 20140907
  10. SODIUM CHLORIDE. [Concomitant]
     Active Substance: SODIUM CHLORIDE
     Route: 065
     Dates: start: 20140714, end: 20140806
  11. PYRAZINAMIDE. [Concomitant]
     Active Substance: PYRAZINAMIDE
     Indication: INFECTION
     Route: 065
     Dates: start: 20140612, end: 20140623
  12. KEPPRA [Concomitant]
     Active Substance: LEVETIRACETAM
     Indication: CONVULSION PROPHYLAXIS
  13. MANNITOL. [Concomitant]
     Active Substance: MANNITOL
     Route: 065
     Dates: start: 20140614, end: 20140624
  14. HEXAMEDINE [Concomitant]
     Route: 065
     Dates: start: 20140615
  15. MYDRIN-P [Concomitant]
     Route: 065
     Dates: start: 20140721, end: 20140721
  16. HUMULIN R [Concomitant]
     Active Substance: INSULIN HUMAN
     Route: 065
     Dates: start: 20141006, end: 20141008
  17. PANTOLINE [Concomitant]
     Route: 065
     Dates: start: 20140924, end: 20141007
  18. MEBAPENEM [Concomitant]
     Route: 065
     Dates: start: 20140921, end: 20141004
  19. ACETAMINOPHEN. [Concomitant]
     Active Substance: ACETAMINOPHEN
     Route: 065
     Dates: start: 20131113
  20. CYMEVENE [Concomitant]
     Active Substance: GANCICLOVIR
     Route: 065
     Dates: start: 20140616
  21. HARDCAL [Concomitant]
     Route: 065
     Dates: start: 20140509, end: 20140608
  22. GRASIN [Concomitant]
     Route: 065
     Dates: start: 20140624, end: 20140624
  23. LASIX [Concomitant]
     Active Substance: FUROSEMIDE
     Route: 065
     Dates: start: 20140628, end: 20140709
  24. LASIX [Concomitant]
     Active Substance: FUROSEMIDE
     Route: 065
     Dates: start: 20140908, end: 20140908
  25. LASIX [Concomitant]
     Active Substance: FUROSEMIDE
     Route: 065
     Dates: start: 20140916, end: 20140916
  26. TACENOL [Concomitant]
     Indication: PAIN
     Route: 065
     Dates: start: 20140527, end: 20140527
  27. VALCYTE [Concomitant]
     Active Substance: VALGANCICLOVIR HYDROCHLORIDE
     Route: 065
     Dates: start: 20140527, end: 20140608
  28. CHLORPHENIRAMINE [Concomitant]
     Active Substance: CHLORPHENIRAMINE
     Route: 065
     Dates: start: 20140907, end: 20140907
  29. CHLORPHENIRAMINE [Concomitant]
     Active Substance: CHLORPHENIRAMINE
     Route: 065
     Dates: start: 20140915, end: 20140916
  30. THIAMINE HCL [Concomitant]
     Route: 065
     Dates: start: 20140610, end: 20140630
  31. NORMAL SALINE [Concomitant]
     Active Substance: SODIUM CHLORIDE
     Route: 065
     Dates: start: 20140827, end: 20140828
  32. NORMAL SALINE [Concomitant]
     Active Substance: SODIUM CHLORIDE
     Route: 065
     Dates: start: 20140921, end: 20140922
  33. NORMAL SALINE [Concomitant]
     Active Substance: SODIUM CHLORIDE
     Route: 065
     Dates: start: 20141003, end: 20141003
  34. POTASSIUM CHLORIDE. [Concomitant]
     Active Substance: POTASSIUM CHLORIDE
     Route: 065
     Dates: start: 20140612, end: 20140820
  35. PHENYTOIN. [Concomitant]
     Active Substance: PHENYTOIN
     Route: 065
     Dates: start: 20140616, end: 20140626
  36. PHENYTOIN. [Concomitant]
     Active Substance: PHENYTOIN
     Route: 065
     Dates: start: 20140921, end: 20140921
  37. DUPHALAC [Concomitant]
     Active Substance: LACTULOSE
     Route: 065
     Dates: start: 20140630, end: 20140630
  38. VFEND [Concomitant]
     Active Substance: VORICONAZOLE
     Indication: ASPERGILLUS INFECTION
     Route: 065
     Dates: start: 20140617, end: 20140702
  39. SALINE [Concomitant]
     Active Substance: SODIUM CHLORIDE
     Route: 065
     Dates: start: 20140828, end: 20140828
  40. DEXTROSE. [Concomitant]
     Active Substance: DEXTROSE
     Route: 065
     Dates: start: 20140914, end: 20140915
  41. DEXTROSE. [Concomitant]
     Active Substance: DEXTROSE
     Route: 065
     Dates: start: 20141006, end: 20141006
  42. MUCOMYST [Concomitant]
     Active Substance: ACETYLCYSTEINE
     Indication: PRODUCTIVE COUGH
     Route: 065
     Dates: start: 20140626, end: 20140630
  43. SPORANOX [Concomitant]
     Active Substance: ITRACONAZOLE\SODIUM CHLORIDE
     Route: 065
     Dates: start: 20140703, end: 20140828
  44. SMOFLIPID [Concomitant]
     Active Substance: FISH OIL\OLIVEOIL\SOYBEAN OIL\TRIGLYCERIDES,UNSPECIFIED LENGTH
     Indication: NUTRITIONAL SUPPLEMENTATION
     Route: 065
     Dates: start: 20140728, end: 20140813
  45. DEXTROSE. [Concomitant]
     Active Substance: DEXTROSE
     Route: 065
     Dates: start: 20140811, end: 20140814
  46. TRANEXAMIC ACID. [Concomitant]
     Active Substance: TRANEXAMIC ACID
     Route: 065
     Dates: start: 20140910, end: 20140930
  47. SODIUM BICARBONATE. [Concomitant]
     Active Substance: SODIUM BICARBONATE
     Route: 065
     Dates: start: 20140821, end: 20140825
  48. IMICILKIT [Concomitant]
     Indication: PYREXIA
     Route: 065
     Dates: start: 20140827, end: 20140828
  49. RIVOTRIL [Concomitant]
     Active Substance: CLONAZEPAM
     Indication: SEIZURE
     Route: 065
     Dates: start: 20140916, end: 20141002
  50. CYCLOPHOSPHAMIDE. [Suspect]
     Active Substance: CYCLOPHOSPHAMIDE
     Indication: DIFFUSE LARGE B-CELL LYMPHOMA
     Dosage: DATE OF LAST DOSE (1418 MG) PRIOR TO SAE ONSET :05/MAR/2014
     Route: 042
     Dates: start: 20131030
  51. PREDNISONE. [Suspect]
     Active Substance: PREDNISONE
     Indication: DIFFUSE LARGE B-CELL LYMPHOMA
     Dosage: DATE OF LAST DOSE (100 MG) PRIOR TO SAE ONSET :05/MAR/2014
     Route: 048
     Dates: start: 20131030
  52. GASTER (SOUTH KOREA) [Concomitant]
     Route: 065
     Dates: start: 20140616, end: 20140627
  53. ANTIS (SOUTH KOREA) [Concomitant]
     Route: 065
     Dates: start: 20131030
  54. GRASIN [Concomitant]
     Route: 065
     Dates: start: 20140629, end: 20140630
  55. GRASIN [Concomitant]
     Route: 065
     Dates: start: 20140705, end: 20140705
  56. JURNISTA [Concomitant]
     Active Substance: HYDROMORPHONE HYDROCHLORIDE
     Indication: PAIN
     Route: 065
     Dates: start: 20140602, end: 20140602
  57. CHLORPHENIRAMINE [Concomitant]
     Active Substance: CHLORPHENIRAMINE
     Route: 065
     Dates: start: 20140913, end: 20140913
  58. COFREL [Concomitant]
     Indication: COUGH
     Route: 065
     Dates: start: 20140605, end: 20140610
  59. ROISOL [Concomitant]
     Indication: PRODUCTIVE COUGH
     Route: 065
     Dates: start: 20140608, end: 20140610
  60. SODIUM CHLORIDE. [Concomitant]
     Active Substance: SODIUM CHLORIDE
     Indication: PROPHYLAXIS
     Route: 065
     Dates: start: 20140608, end: 20140610
  61. NORMAL SALINE [Concomitant]
     Active Substance: SODIUM CHLORIDE
     Route: 065
     Dates: start: 20140611, end: 20140612
  62. NORMAL SALINE [Concomitant]
     Active Substance: SODIUM CHLORIDE
     Route: 065
     Dates: start: 20140920, end: 20140920
  63. DEXAMETHASONE. [Concomitant]
     Active Substance: DEXAMETHASONE
     Indication: DIABETES INSIPIDUS
     Route: 065
     Dates: start: 20140612, end: 20140627
  64. SODIUM CHLORIDE. [Concomitant]
     Active Substance: SODIUM CHLORIDE
     Route: 065
     Dates: start: 20140613, end: 20140624
  65. CALCIUM GLUCONATE. [Concomitant]
     Active Substance: CALCIUM GLUCONATE
     Route: 065
     Dates: start: 20140908, end: 20140908
  66. NUTRIFLEX [Concomitant]
     Active Substance: AMINO ACIDS\CARBOHYDRATES\ELECTROLYTES NOS
     Indication: NUTRITIONAL SUPPLEMENTATION
     Route: 065
     Dates: start: 20140613, end: 20140613
  67. NUTRIFLEX [Concomitant]
     Active Substance: AMINO ACIDS\CARBOHYDRATES\ELECTROLYTES NOS
     Route: 065
     Dates: start: 20140615, end: 20140702
  68. ATIVAN [Concomitant]
     Active Substance: LORAZEPAM
     Route: 065
     Dates: start: 20140815, end: 20140815
  69. ATIVAN [Concomitant]
     Active Substance: LORAZEPAM
     Route: 065
     Dates: start: 20140920, end: 20140921
  70. ORFIL [Concomitant]
     Indication: SEIZURE
     Route: 065
     Dates: start: 20140614, end: 20140621
  71. MAGNESIUM SULFATE. [Concomitant]
     Active Substance: MAGNESIUM SULFATE
     Route: 065
     Dates: start: 20140625, end: 20140701
  72. DUPHALAC [Concomitant]
     Active Substance: LACTULOSE
     Route: 065
     Dates: start: 20140702, end: 20140713
  73. SALINE [Concomitant]
     Active Substance: SODIUM CHLORIDE
     Route: 065
     Dates: start: 20140623, end: 20140623
  74. DEXTROSE. [Concomitant]
     Active Substance: DEXTROSE
     Route: 065
     Dates: start: 20140624, end: 20140719
  75. DEXTROSE. [Concomitant]
     Active Substance: DEXTROSE
     Route: 065
     Dates: start: 20140816, end: 20140827
  76. HUMULIN R [Concomitant]
     Active Substance: INSULIN HUMAN
     Route: 065
     Dates: start: 20140822, end: 20140826
  77. HUMULIN R [Concomitant]
     Active Substance: INSULIN HUMAN
     Route: 065
     Dates: start: 20140830, end: 20140906
  78. SPORANOX [Concomitant]
     Active Substance: ITRACONAZOLE\SODIUM CHLORIDE
     Route: 065
     Dates: start: 20140918, end: 20141003
  79. LIDOCAINE HCL [Concomitant]
     Active Substance: LIDOCAINE HYDROCHLORIDE
     Route: 065
     Dates: start: 20140708, end: 20140708
  80. EPINEPHRINE. [Concomitant]
     Active Substance: EPINEPHRINE
     Route: 065
     Dates: start: 20140708, end: 20140708
  81. LANSTON [Concomitant]
     Active Substance: LANSOPRAZOLE
     Indication: GASTRITIS PROPHYLAXIS
     Route: 065
     Dates: start: 20140729
  82. MINIRIN [Concomitant]
     Active Substance: DESMOPRESSIN ACETATE
     Route: 065
     Dates: start: 20140818, end: 20140819
  83. TRANEXAMIC ACID. [Concomitant]
     Active Substance: TRANEXAMIC ACID
     Indication: HAEMOPTYSIS
     Route: 065
     Dates: start: 20140813, end: 20140822
  84. TAPOCIN [Concomitant]
     Indication: PYREXIA
     Route: 065
     Dates: start: 20140815, end: 20140818
  85. MACPERAN [Concomitant]
     Route: 065
     Dates: start: 20140902, end: 20140903
  86. ALDRIN [Concomitant]
     Route: 065
     Dates: start: 20131022, end: 20140607
  87. IFECTRA [Concomitant]
     Route: 065
     Dates: start: 20140418, end: 20140608
  88. SMECTA [Concomitant]
     Active Substance: MONTMORILLONITE
     Route: 065
     Dates: start: 20140814, end: 20140916
  89. GRASIN [Concomitant]
     Route: 065
     Dates: start: 20140530, end: 20140530
  90. GRASIN [Concomitant]
     Route: 065
     Dates: start: 20140619, end: 20140619
  91. GRASIN [Concomitant]
     Route: 065
     Dates: start: 20140711, end: 20140711
  92. GRASIN [Concomitant]
     Route: 065
     Dates: start: 20140804, end: 20140804
  93. PACETA [Concomitant]
     Indication: PYREXIA
     Route: 065
     Dates: start: 20140511, end: 20140512
  94. LASIX [Concomitant]
     Active Substance: FUROSEMIDE
     Route: 065
     Dates: start: 20140905, end: 20140906
  95. PHAZYME [Concomitant]
     Active Substance: DIMETHICONE 410
     Indication: DYSPEPSIA
     Route: 065
     Dates: start: 20140524, end: 20140524
  96. ZYTRAM XL [Concomitant]
     Active Substance: TRAMADOL HYDROCHLORIDE
     Indication: PAIN
     Route: 065
     Dates: start: 20140528, end: 20140604
  97. CHLORPHENIRAMINE [Concomitant]
     Active Substance: CHLORPHENIRAMINE
     Route: 065
     Dates: start: 20140901, end: 20140901
  98. CHLORPHENIRAMINE [Concomitant]
     Active Substance: CHLORPHENIRAMINE
     Route: 065
     Dates: start: 20140923, end: 20140926
  99. CHLORPHENIRAMINE [Concomitant]
     Active Substance: CHLORPHENIRAMINE
     Route: 065
     Dates: start: 20141004, end: 20141004
  100. CHLORPHENIRAMINE [Concomitant]
     Active Substance: CHLORPHENIRAMINE
     Route: 065
     Dates: start: 20141006, end: 20141006
  101. NORMAL SALINE [Concomitant]
     Active Substance: SODIUM CHLORIDE
     Route: 065
     Dates: start: 20141001, end: 20141001
  102. CALCIUM GLUCONATE. [Concomitant]
     Active Substance: CALCIUM GLUCONATE
     Route: 065
     Dates: start: 20141006, end: 20141006
  103. TAZOCIN [Concomitant]
     Active Substance: PIPERACILLIN SODIUM\TAZOBACTAM SODIUM
     Route: 065
     Dates: start: 20140815, end: 20140826
  104. ATIVAN [Concomitant]
     Active Substance: LORAZEPAM
     Indication: SEIZURE
     Route: 065
     Dates: start: 20140614, end: 20140614
  105. ATIVAN [Concomitant]
     Active Substance: LORAZEPAM
     Route: 065
     Dates: start: 20140617, end: 20140618
  106. MAGNESIUM SULFATE. [Concomitant]
     Active Substance: MAGNESIUM SULFATE
     Route: 065
     Dates: start: 20140616, end: 20140622
  107. DULCOLAX (BISACODYL) [Concomitant]
     Active Substance: BISACODYL
     Indication: CONSTIPATION
     Route: 065
     Dates: start: 20140622, end: 20140622
  108. PHOSTEN [Concomitant]
     Route: 065
     Dates: start: 20140623, end: 20140624
  109. DEXTROSE. [Concomitant]
     Active Substance: DEXTROSE
     Route: 065
     Dates: start: 20140829, end: 20140902
  110. HUMULIN R [Concomitant]
     Active Substance: INSULIN HUMAN
     Indication: PROPHYLAXIS
     Route: 065
     Dates: start: 20140625, end: 20140802
  111. GANATON [Concomitant]
     Active Substance: ITOPRIDE
     Route: 065
     Dates: start: 20140726
  112. AMBROCOL [Concomitant]
     Active Substance: AMBROXOL HYDROCHLORIDE\CLENBUTEROL
     Indication: PRODUCTIVE COUGH
     Route: 065
     Dates: start: 20140802, end: 20140916
  113. BONALING-A [Concomitant]
     Indication: DIZZINESS
     Route: 065
     Dates: start: 20140517, end: 20140528
  114. YUHAN-ZID [Concomitant]
     Indication: INFECTION
     Route: 065
     Dates: start: 20140612, end: 20140623
  115. CEBATRIM [Concomitant]
     Indication: PYREXIA
     Route: 065
     Dates: start: 20140821, end: 20140824
  116. MACPERAN [Concomitant]
     Indication: HICCUPS
     Route: 065
     Dates: start: 20140827, end: 20140828
  117. CANCIDAS [Concomitant]
     Active Substance: CASPOFUNGIN ACETATE
     Indication: PYREXIA
     Route: 065
     Dates: start: 20140829, end: 20140917
  118. OBINUTUZUMAB [Suspect]
     Active Substance: OBINUTUZUMAB
     Indication: DIFFUSE LARGE B-CELL LYMPHOMA
     Dosage: DATE OF LAST DOSE (250ML, CONCENTRATION 4 MG/ML) PRIOR TO SAE ONSET: 05/MAR/2014
     Route: 042
     Dates: start: 20131030
  119. IFECTRA [Concomitant]
     Indication: PNEUMONIA
     Route: 065
     Dates: start: 20131022
  120. TRIDOL (SOUTH KOREA) [Concomitant]
     Indication: HEADACHE
     Route: 065
     Dates: start: 20140414, end: 20140527
  121. TRIDOL (SOUTH KOREA) [Concomitant]
     Indication: PAIN
     Route: 065
     Dates: start: 20140610, end: 20140614
  122. PREDNISOLONE. [Concomitant]
     Active Substance: PREDNISOLONE
     Indication: PNEUMONIA
     Route: 065
     Dates: start: 20140415, end: 20140612
  123. TAZOPERAN [Concomitant]
     Indication: PNEUMONIA
     Route: 065
     Dates: start: 20140423, end: 20140511
  124. AVELOX (SOUTH KOREA) [Concomitant]
     Indication: PNEUMONIA
     Route: 065
     Dates: start: 20140508, end: 20140521
  125. GRASIN [Concomitant]
     Route: 065
     Dates: start: 20140518, end: 20140518
  126. GRASIN [Concomitant]
     Route: 065
     Dates: start: 20140730, end: 20140730
  127. GRASIN [Concomitant]
     Route: 065
     Dates: start: 20140815, end: 20140816
  128. GRASIN [Concomitant]
     Route: 065
     Dates: start: 20140818, end: 20140903
  129. LASIX [Concomitant]
     Active Substance: FUROSEMIDE
     Route: 065
     Dates: start: 20140616, end: 20140623
  130. CHLORPHENIRAMINE [Concomitant]
     Active Substance: CHLORPHENIRAMINE
     Route: 065
     Dates: start: 20140930, end: 20141002
  131. ROISOL [Concomitant]
     Route: 065
     Dates: start: 20140701, end: 20140703
  132. TAMBUTOL [Concomitant]
     Indication: INFECTION
     Route: 065
     Dates: start: 20140612, end: 20140623
  133. CALCIUM GLUCONATE. [Concomitant]
     Active Substance: CALCIUM GLUCONATE
     Route: 065
     Dates: start: 20140613, end: 20140613
  134. TAZOCIN [Concomitant]
     Active Substance: PIPERACILLIN SODIUM\TAZOBACTAM SODIUM
     Indication: PYREXIA
     Route: 065
     Dates: start: 20140613, end: 20140614
  135. ULCERMIN (SOUTH KOREA) [Concomitant]
     Route: 065
     Dates: start: 20140615, end: 20140615
  136. MAGNESIUM SULFATE. [Concomitant]
     Active Substance: MAGNESIUM SULFATE
     Route: 065
     Dates: start: 20140730, end: 20140731
  137. MAGNESIUM SULFATE. [Concomitant]
     Active Substance: MAGNESIUM SULFATE
     Route: 065
     Dates: start: 20140802, end: 20140802
  138. DOMPIL (SOUTH KOREA) [Concomitant]
     Route: 065
     Dates: start: 20140620, end: 20140620
  139. VECARON [Concomitant]
     Route: 065
     Dates: start: 20140623, end: 20140623
  140. MINIRIN [Concomitant]
     Active Substance: DESMOPRESSIN ACETATE
     Indication: DIABETES INSIPIDUS
     Route: 065
     Dates: start: 20140813, end: 20140814
  141. BACTROBAN [Concomitant]
     Active Substance: MUPIROCIN\MUPIROCIN CALCIUM
     Route: 065
     Dates: start: 20140814, end: 20140814
  142. NORPINE [Concomitant]
     Route: 065
     Dates: start: 20140920, end: 20141008
  143. DEMEROL [Concomitant]
     Active Substance: MEPERIDINE HYDROCHLORIDE
     Indication: PYREXIA
     Route: 065
     Dates: start: 20140829, end: 20140829
  144. EXCEGRAN [Concomitant]
     Active Substance: ZONISAMIDE
     Indication: SEIZURE
     Route: 065
     Dates: start: 20140925, end: 20141002
  145. DOXORUBICIN [Suspect]
     Active Substance: DOXORUBICIN
     Indication: DIFFUSE LARGE B-CELL LYMPHOMA
     Dosage: DATE OF LAST DOSE (71 MG) PRIOR TO SAE ONSET :05/MAR/2014
     Route: 042
     Dates: start: 20131030
  146. CITOPCIN [Concomitant]
     Route: 065
     Dates: start: 20140528, end: 20140608
  147. STILNOX [Concomitant]
     Active Substance: ZOLPIDEM TARTRATE
     Indication: INSOMNIA
     Route: 065
     Dates: start: 20140417, end: 20140528
  148. RAMEZOL [Concomitant]
     Indication: GASTRITIS PROPHYLAXIS
     Route: 065
     Dates: start: 20140419, end: 20140608
  149. CODEINE [Concomitant]
     Active Substance: CODEINE
     Indication: COUGH
     Route: 065
     Dates: start: 20140428, end: 20140525
  150. GRASIN [Concomitant]
     Route: 065
     Dates: start: 20140809, end: 20140809
  151. GRASIN [Concomitant]
     Route: 065
     Dates: start: 20140922, end: 20140923
  152. LASIX [Concomitant]
     Active Substance: FUROSEMIDE
     Route: 065
     Dates: start: 20140815, end: 20140815
  153. TACENOL [Concomitant]
     Route: 065
     Dates: start: 20140530, end: 20140601
  154. MEGACE [Concomitant]
     Active Substance: MEGESTROL ACETATE
     Route: 065
     Dates: start: 20140529, end: 20140608
  155. CHLORPHENIRAMINE [Concomitant]
     Active Substance: CHLORPHENIRAMINE
     Route: 065
     Dates: start: 20140909, end: 20140909
  156. CHLORPHENIRAMINE [Concomitant]
     Active Substance: CHLORPHENIRAMINE
     Route: 065
     Dates: start: 20140928, end: 20140928
  157. FLORINEF ACETATE [Concomitant]
     Active Substance: FLUDROCORTISONE ACETATE
     Route: 065
     Dates: start: 20140611, end: 20140613
  158. K-CONTIN [Concomitant]
     Indication: PROPHYLAXIS
     Route: 065
     Dates: start: 20140612, end: 20140614
  159. POTASSIUM CHLORIDE. [Concomitant]
     Active Substance: POTASSIUM CHLORIDE
     Route: 065
     Dates: start: 20140914, end: 20140925
  160. PYRIDOXINE [Concomitant]
     Active Substance: PYRIDOXINE
     Indication: INFECTION
     Route: 065
     Dates: start: 20140612, end: 20140623
  161. CALCIUM GLUCONATE. [Concomitant]
     Active Substance: CALCIUM GLUCONATE
     Route: 065
     Dates: start: 20140829, end: 20140829
  162. CALCIUM GLUCONATE. [Concomitant]
     Active Substance: CALCIUM GLUCONATE
     Route: 065
     Dates: start: 20140902, end: 20140902
  163. MAGNESIUM SULFATE. [Concomitant]
     Active Substance: MAGNESIUM SULFATE
     Route: 065
     Dates: start: 20140805, end: 20140806
  164. AVENTRO [Concomitant]
     Indication: PRODUCTIVE COUGH
     Route: 065
     Dates: start: 20140616, end: 20140623
  165. TOPAMAX [Concomitant]
     Active Substance: TOPIRAMATE
     Route: 065
     Dates: start: 20140923, end: 20141002
  166. MUCOMYST [Concomitant]
     Active Substance: ACETYLCYSTEINE
     Route: 065
     Dates: start: 20140816, end: 20140920
  167. SMOFLIPID [Concomitant]
     Active Substance: FISH OIL\OLIVEOIL\SOYBEAN OIL\TRIGLYCERIDES,UNSPECIFIED LENGTH
     Route: 065
     Dates: start: 20140816, end: 20140822
  168. MINIRIN [Concomitant]
     Active Substance: DESMOPRESSIN ACETATE
     Route: 065
     Dates: start: 20141001, end: 20141001
  169. CEBATRIM [Concomitant]
     Route: 065
     Dates: start: 20140829, end: 20140918
  170. LAMOTRIGINE. [Concomitant]
     Active Substance: LAMOTRIGINE
     Indication: SEIZURE
     Route: 065
     Dates: start: 20140923, end: 20141002
  171. GRASIN [Concomitant]
     Route: 065
     Dates: start: 20140514, end: 20140515
  172. JURNISTA [Concomitant]
     Active Substance: HYDROMORPHONE HYDROCHLORIDE
     Route: 065
     Dates: start: 20140605, end: 20140605
  173. CHLORPHENIRAMINE [Concomitant]
     Active Substance: CHLORPHENIRAMINE
     Route: 065
     Dates: start: 20140602, end: 20140602
  174. CHLORPHENIRAMINE [Concomitant]
     Active Substance: CHLORPHENIRAMINE
     Route: 065
     Dates: start: 20140815, end: 20140815
  175. CHLORPHENIRAMINE [Concomitant]
     Active Substance: CHLORPHENIRAMINE
     Route: 065
     Dates: start: 20140921, end: 20140921
  176. SODIUM CHLORIDE. [Concomitant]
     Active Substance: SODIUM CHLORIDE
     Route: 065
     Dates: start: 20140613, end: 20140624
  177. SODIUM CHLORIDE. [Concomitant]
     Active Substance: SODIUM CHLORIDE
     Route: 065
     Dates: start: 20140813, end: 20140813
  178. NORMAL SALINE [Concomitant]
     Active Substance: SODIUM CHLORIDE
     Route: 065
     Dates: start: 20140614, end: 20140614
  179. NORMAL SALINE [Concomitant]
     Active Substance: SODIUM CHLORIDE
     Route: 065
     Dates: start: 20140616, end: 20140624
  180. NORMAL SALINE [Concomitant]
     Active Substance: SODIUM CHLORIDE
     Route: 065
     Dates: start: 20140924, end: 20140924
  181. NORMAL SALINE [Concomitant]
     Active Substance: SODIUM CHLORIDE
     Route: 065
     Dates: start: 20141006, end: 20141006
  182. POTASSIUM CHLORIDE. [Concomitant]
     Active Substance: POTASSIUM CHLORIDE
     Route: 065
     Dates: start: 20140822, end: 20140827
  183. DEXAMETHASONE. [Concomitant]
     Active Substance: DEXAMETHASONE
     Route: 065
     Dates: start: 20140814, end: 20140814
  184. DUPHALAC [Concomitant]
     Active Substance: LACTULOSE
     Indication: CONSTIPATION
     Route: 065
     Dates: start: 20140617, end: 20140621
  185. DUPHALAC [Concomitant]
     Active Substance: LACTULOSE
     Route: 065
     Dates: start: 20140626, end: 20140627
  186. PHOSTEN [Concomitant]
     Route: 065
     Dates: start: 20140818, end: 20140818
  187. HUMALOG [Concomitant]
     Active Substance: INSULIN LISPRO
     Route: 065
     Dates: start: 20140623, end: 20140623
  188. MYDRIN-P [Concomitant]
     Route: 065
     Dates: start: 20140630, end: 20140630
  189. PANTOLINE [Concomitant]
     Route: 065
     Dates: start: 20140628, end: 20140728
  190. VECARON [Concomitant]
     Route: 065
     Dates: start: 20140708, end: 20140708
  191. MEBAPENEM [Concomitant]
     Indication: PYREXIA
     Route: 065
     Dates: start: 20140829, end: 20140914
  192. BACLAN (SOUTH KOREA) [Concomitant]
     Indication: HICCUPS
     Route: 065
     Dates: start: 20140902, end: 20140902
  193. CITOPCIN [Concomitant]
     Indication: ANTIBIOTIC PROPHYLAXIS
     Route: 065
     Dates: start: 20131022
  194. ALLOPURINOL. [Concomitant]
     Active Substance: ALLOPURINOL
     Route: 065
     Dates: start: 20131022
  195. CYMEVENE [Concomitant]
     Active Substance: GANCICLOVIR
     Route: 065
     Dates: start: 20140505, end: 20140527
  196. GRASIN [Concomitant]
     Route: 065
     Dates: start: 20140522, end: 20140522
  197. GRASIN [Concomitant]
     Route: 065
     Dates: start: 20140525, end: 20140525
  198. GRASIN [Concomitant]
     Route: 065
     Dates: start: 20140807, end: 20140807
  199. PACETA [Concomitant]
     Indication: PAIN
     Route: 065
     Dates: start: 20140614, end: 20140614
  200. LASIX [Concomitant]
     Active Substance: FUROSEMIDE
     Indication: FLUID OVERLOAD
     Route: 065
     Dates: start: 20140413, end: 20140514
  201. VALCYTE [Concomitant]
     Active Substance: VALGANCICLOVIR HYDROCHLORIDE
     Route: 065
     Dates: start: 20140616
  202. CHLORPHENIRAMINE [Concomitant]
     Active Substance: CHLORPHENIRAMINE
     Route: 065
     Dates: start: 20140817, end: 20140817
  203. CHLORPHENIRAMINE [Concomitant]
     Active Substance: CHLORPHENIRAMINE
     Route: 065
     Dates: start: 20140823, end: 20140823
  204. CHLORPHENIRAMINE [Concomitant]
     Active Substance: CHLORPHENIRAMINE
     Route: 065
     Dates: start: 20140826, end: 20140826
  205. CHLORPHENIRAMINE [Concomitant]
     Active Substance: CHLORPHENIRAMINE
     Route: 065
     Dates: start: 20140903, end: 20140903
  206. CHLORPHENIRAMINE [Concomitant]
     Active Substance: CHLORPHENIRAMINE
     Route: 065
     Dates: start: 20140918, end: 20140919
  207. ROISOL [Concomitant]
     Route: 065
     Dates: start: 20140917, end: 20141007
  208. NORMAL SALINE [Concomitant]
     Active Substance: SODIUM CHLORIDE
     Route: 065
     Dates: start: 20140923, end: 20140925
  209. FURIX [Concomitant]
     Active Substance: FUROSEMIDE
     Route: 065
     Dates: start: 20140611, end: 20140613
  210. RIFODEX [Concomitant]
     Indication: INFECTION
     Route: 065
     Dates: start: 20140612, end: 20140623
  211. SODIUM CHLORIDE. [Concomitant]
     Active Substance: SODIUM CHLORIDE
     Route: 065
     Dates: start: 20140822, end: 20140822
  212. CALCIUM GLUCONATE. [Concomitant]
     Active Substance: CALCIUM GLUCONATE
     Route: 065
     Dates: start: 20140627, end: 20140701
  213. ORFIL [Concomitant]
     Route: 065
     Dates: start: 20140922, end: 20140922
  214. KEPPRA [Concomitant]
     Active Substance: LEVETIRACETAM
     Indication: SEIZURE
     Route: 065
     Dates: start: 20140614
  215. TOPAMAX [Concomitant]
     Active Substance: TOPIRAMATE
     Route: 065
     Dates: start: 20140617, end: 20140708
  216. SENTIL [Concomitant]
     Route: 065
     Dates: start: 20140617, end: 20140623
  217. DOMPIL (SOUTH KOREA) [Concomitant]
     Route: 065
     Dates: start: 20140701, end: 20140725
  218. MYDRIN-P [Concomitant]
     Indication: OPHTHALMOLOGICAL EXAMINATION
     Route: 065
     Dates: start: 20140624, end: 20140624
  219. SMOFLIPID [Concomitant]
     Active Substance: FISH OIL\OLIVEOIL\SOYBEAN OIL\TRIGLYCERIDES,UNSPECIFIED LENGTH
     Route: 065
     Dates: start: 20140826, end: 20140826
  220. IMICILKIT [Concomitant]
     Route: 065
     Dates: start: 20140920, end: 20140921
  221. NORPINE [Concomitant]
     Indication: HYPOTENSION
     Route: 065
     Dates: start: 20140827, end: 20140830

REACTIONS (2)
  - HIV antibody positive [Not Recovered/Not Resolved]
  - Meningitis viral [Fatal]

NARRATIVE: CASE EVENT DATE: 20140608
